FAERS Safety Report 20935053 (Version 2)
Quarter: 2022Q3

REPORT INFORMATION
  Report Type: Report from Study
  Country: US (occurrence: US)
  Receive Date: 20220608
  Receipt Date: 20220714
  Transmission Date: 20221026
  Serious: Yes (Other)
  Sender: FDA-Public Use
  Company Number: US-BRISTOL-MYERS SQUIBB COMPANY-2022-049880

PATIENT
  Age: 45 Year
  Sex: Female
  Weight: 94.8 kg

DRUGS (1)
  1. REVLIMID [Suspect]
     Active Substance: LENALIDOMIDE
     Indication: Plasma cell myeloma
     Dosage: FREQUENCY: DAILY FOR 21 OUT OF 28 DAYS
     Route: 048
     Dates: start: 201912

REACTIONS (3)
  - Multiple allergies [Unknown]
  - Cough [Unknown]
  - Urinary tract infection [Unknown]
